FAERS Safety Report 10066024 (Version 1)
Quarter: 2014Q1

REPORT INFORMATION
  Report Type: Spontaneous
  Country: US (occurrence: None)
  Receive Date: 20140328
  Receipt Date: 20140328
  Transmission Date: 20141002
  Serious: No
  Sender: FDA-Public Use
  Company Number: 1000054252

PATIENT
  Age: 56 Year
  Sex: Male

DRUGS (1)
  1. LINZESS (LINACLOTIDE) [Suspect]
     Indication: CONSTIPATION
     Dates: start: 2013

REACTIONS (1)
  - Drug ineffective [None]
